FAERS Safety Report 5150595-8 (Version None)
Quarter: 2006Q4

REPORT INFORMATION
  Report Type: 
  Country: None (occurrence: None)
  Receive Date: 20061114
  Receipt Date: 20061110
  Transmission Date: 20070319
  Serious: Yes (Other)
  Sender: FDA-Public Use
  Company Number: NL-BRISTOL-MYERS SQUIBB COMPANY-13573332

PATIENT
  Age: 44 Year
  Sex: Female

DRUGS (1)
  1. KENACORT [Suspect]
     Dates: start: 20061109

REACTIONS (2)
  - ERYTHEMA [None]
  - SWELLING FACE [None]
